FAERS Safety Report 4404146-3 (Version None)
Quarter: 2004Q3

REPORT INFORMATION
  Report Type: 
  Country: None (occurrence: None)
  Receive Date: 20040722
  Receipt Date: 20040503
  Transmission Date: 20050211
  Serious: Yes (Hospitalization)
  Sender: FDA-Public Use
  Company Number: DE-BRISTOL-MYERS SQUIBB COMPANY-12576765

PATIENT
  Age: 66 Year
  Sex: Female
  Weight: 43 kg

DRUGS (4)
  1. CARBOPLATIN [Suspect]
     Indication: ENDOMETRIAL CANCER
     Dosage: THERAPY DATES: 18-FEB-2004 510 MG, 17-MAR-2004 612 MG, 14-APR-2004
     Route: 042
     Dates: start: 20040414, end: 20040414
  2. CAELYX [Suspect]
     Indication: ENDOMETRIAL CANCER
     Dosage: THERAPY DATES: 18-FEB-2004 59MG,17-MAR-2004 55.2MG, 14-APR-2004
     Route: 042
     Dates: start: 20040414, end: 20040414
  3. DEXAMETHASONE [Concomitant]
     Indication: PROPHYLAXIS
     Dosage: DOSING ALSO ON 18-FEB-2004, 17-MAR-2004, AND 14-APR-2004
     Route: 042
     Dates: start: 20040414, end: 20040414
  4. GRANISETRON [Concomitant]
     Indication: PROPHYLAXIS OF NAUSEA AND VOMITING
     Dosage: DOSING ON 18-FEB-2004, 17-MAR-2004, AND 14-APR-2004
     Route: 042
     Dates: start: 20040414, end: 20040414

REACTIONS (1)
  - HEPATIC PAIN [None]
